FAERS Safety Report 8221945 (Version 10)
Quarter: 2014Q2

REPORT INFORMATION
  Report Type: Spontaneous
  Country: JP (occurrence: JP)
  Receive Date: 20111102
  Receipt Date: 20140521
  Transmission Date: 20141212
  Serious: Yes (Other)
  Sender: FDA-Public Use
  Company Number: PHHY2011JP95727

PATIENT
  Age: 21 Year
  Sex: Female
  Weight: 52 kg

DRUGS (56)
  1. CLOZAPINE [Suspect]
     Indication: SCHIZOPHRENIA, PARANOID TYPE
     Dosage: 12.5 MG, UNK
     Route: 048
     Dates: start: 20101006, end: 20101006
  2. CLOZAPINE [Suspect]
     Dosage: 25 MG, UNK
     Route: 048
     Dates: start: 20101007, end: 20101011
  3. CLOZAPINE [Suspect]
     Dosage: 50 MG, UNK
     Route: 048
     Dates: start: 20101012, end: 20101014
  4. CLOZAPINE [Suspect]
     Dosage: 75 MG, UNK
     Route: 048
     Dates: start: 20101015, end: 20101017
  5. CLOZAPINE [Suspect]
     Dosage: 100 MG, UNK
     Route: 048
     Dates: start: 20101018, end: 20101021
  6. CLOZAPINE [Suspect]
     Dosage: 125 MG, UNK
     Route: 048
     Dates: start: 20101022, end: 20101024
  7. CLOZAPINE [Suspect]
     Dosage: 175 MG, UNK
     Route: 048
     Dates: start: 20101025, end: 20101028
  8. CLOZAPINE [Suspect]
     Dosage: 200 MG, UNK
     Route: 048
     Dates: start: 20101029, end: 20101031
  9. CLOZAPINE [Suspect]
     Dosage: 250 MG, UNK
     Route: 048
     Dates: start: 20101101, end: 20101104
  10. CLOZAPINE [Suspect]
     Dosage: 300 MG, UNK
     Route: 048
     Dates: start: 20101105, end: 20101110
  11. CLOZAPINE [Suspect]
     Dosage: 350 MG, UNK
     Route: 048
     Dates: start: 20101111, end: 20101201
  12. CLOZAPINE [Suspect]
     Dosage: 400 MG, UNK
     Route: 048
     Dates: start: 20101202, end: 20101215
  13. CLOZAPINE [Suspect]
     Dosage: 450 MG, UNK
     Route: 048
     Dates: start: 20101216, end: 20110112
  14. CLOZAPINE [Suspect]
     Dosage: 500 MG, UNK
     Route: 048
     Dates: start: 20110113, end: 20110602
  15. CLOZAPINE [Suspect]
     Dosage: 350 MG, UNK
     Route: 048
     Dates: start: 20110603
  16. CLOZAPINE [Suspect]
     Dosage: 400 MG, QD
  17. CLOZAPINE [Suspect]
     Dosage: 500 MG, QD
  18. CLOZAPINE [Suspect]
     Dosage: 550 MG, QD
     Dates: start: 20110603
  19. CLOZAPINE [Suspect]
     Dosage: 600 MG, UNK
  20. VALPROIC ACID [Suspect]
  21. RISPERIDONE [Suspect]
     Dosage: 2 MG, UNK
     Route: 048
     Dates: end: 20101024
  22. ARIPIPRAZOLE [Suspect]
     Dosage: 24 MG, QD
     Route: 048
     Dates: start: 20101006
  23. ARIPIPRAZOLE [Suspect]
     Dosage: 18 MG, UNK
     Route: 048
  24. ARIPIPRAZOLE [Suspect]
     Dosage: 12 MG, UNK
     Route: 048
  25. ARIPIPRAZOLE [Suspect]
     Dosage: 6 MG, UNK
     Route: 048
     Dates: end: 20101022
  26. BLONANSERIN [Suspect]
     Dosage: 24 MG, PER DAY
  27. DIHYDERGOT [Concomitant]
     Indication: SCHIZOPHRENIA, PARANOID TYPE
     Dosage: 2 MG, UNK
     Route: 048
     Dates: start: 20101006
  28. DIHYDERGOT [Concomitant]
     Dosage: 1 MG, UNK
     Route: 048
     Dates: end: 20101022
  29. AMOBAN [Concomitant]
     Indication: SCHIZOPHRENIA, PARANOID TYPE
     Dosage: 7.5 MG, UNK
     Route: 048
     Dates: start: 20101006, end: 20101006
  30. VANCOMIN [Concomitant]
     Indication: SCHIZOPHRENIA, PARANOID TYPE
     Dosage: 500 MG, UNK
     Route: 048
     Dates: start: 20101006, end: 20101006
  31. ROHYPNOL [Concomitant]
     Indication: SCHIZOPHRENIA, PARANOID TYPE
     Dosage: 2 MG, UNK
     Route: 048
     Dates: start: 20101007, end: 20101031
  32. METLIGINE [Concomitant]
     Indication: SCHIZOPHRENIA, PARANOID TYPE
     Dosage: 4 MG, UNK
     Route: 048
     Dates: start: 20101006
  33. METLIGINE [Concomitant]
     Dosage: 2 MG, UNK
     Route: 048
     Dates: end: 20101029
  34. VENA [Concomitant]
     Indication: SCHIZOPHRENIA, PARANOID TYPE
     Dosage: 50 MG, UNK
     Route: 048
     Dates: start: 20101006
  35. VENA [Concomitant]
     Dosage: 20 MG, UNK
     Route: 048
     Dates: end: 20101013
  36. RHYTHMY [Concomitant]
     Indication: SCHIZOPHRENIA, PARANOID TYPE
     Dosage: 2 MG, UNK
     Route: 048
     Dates: start: 20101006, end: 20101028
  37. DEPAS [Concomitant]
     Indication: SCHIZOPHRENIA, PARANOID TYPE
     Dosage: 3 MG, UNK
     Route: 048
     Dates: start: 20101006
  38. DEPAS [Concomitant]
     Dosage: 1.5 MG, UNK
     Route: 048
  39. DEPAS [Concomitant]
     Dosage: 1 MG, UNK
     Route: 048
  40. DEPAS [Concomitant]
     Dosage: 0.5 MG, UNK
     Route: 048
     Dates: end: 20101109
  41. MIYA-BM [Concomitant]
     Indication: CONSTIPATION
     Dosage: 3 MG, UNK
     Route: 048
     Dates: start: 20101006
  42. MIYA-BM [Concomitant]
     Dosage: 2 MG, UNK
     Route: 048
  43. MIYA-BM [Concomitant]
     Dosage: 1 MG, UNK
     Route: 048
     Dates: end: 20101110
  44. WYPAX [Concomitant]
     Indication: SCHIZOPHRENIA, PARANOID TYPE
     Dosage: 3 MG, UNK
     Route: 048
     Dates: start: 20101006
  45. WYPAX [Concomitant]
     Dosage: 3 MG, UNK
  46. WYPAX [Concomitant]
     Dosage: 1.5 MG, UNK
     Route: 048
  47. WYPAX [Concomitant]
     Dosage: 1 MG, UNK
     Route: 048
  48. WYPAX [Concomitant]
     Dosage: 0.5 MG, UNK
     Route: 048
  49. WYPAX [Concomitant]
     Dosage: 1.5 MG, UNK
     Route: 048
  50. WYPAX [Concomitant]
     Dosage: 1 MG, UNK
     Route: 048
     Dates: end: 20101220
  51. PARIET [Concomitant]
     Dosage: 10 MG, UNK
     Route: 048
     Dates: start: 20110427, end: 20110701
  52. LAMICTAL [Concomitant]
     Indication: SCHIZOPHRENIA, PARANOID TYPE
     Dosage: UNK
     Route: 048
     Dates: start: 20111008
  53. LAMICTAL [Concomitant]
     Dosage: 100 MG, UNK
     Route: 048
  54. SENNARIDE [Concomitant]
     Dosage: 24 MG, UNK
     Route: 048
     Dates: start: 20111008
  55. LIMAS [Concomitant]
     Dosage: 200 MG, UNK
     Route: 048
     Dates: start: 20111216
  56. ZOTEPINE [Concomitant]
     Dosage: UNK

REACTIONS (22)
  - Electroencephalogram abnormal [Recovered/Resolved]
  - Dyskinesia [Recovering/Resolving]
  - Myoclonic epilepsy [Recovered/Resolved]
  - Heart rate increased [Unknown]
  - Orthostatic hypotension [Recovering/Resolving]
  - Multiple sclerosis [Recovering/Resolving]
  - Diplopia [Unknown]
  - Sensory loss [Recovering/Resolving]
  - Delusional disorder, erotomanic type [Recovering/Resolving]
  - White blood cell count increased [Recovered/Resolved]
  - Haemoglobin decreased [Recovered/Resolved]
  - Haematocrit decreased [Recovered/Resolved]
  - Lactation disorder [Unknown]
  - Psychiatric symptom [Recovering/Resolving]
  - Hallucination [Recovering/Resolving]
  - Delusion [Recovering/Resolving]
  - Condition aggravated [Unknown]
  - Sedation [Recovering/Resolving]
  - Nausea [Recovering/Resolving]
  - Salivary hypersecretion [Recovering/Resolving]
  - Dizziness [Unknown]
  - Drug ineffective [Unknown]
